FAERS Safety Report 8320276-8 (Version None)
Quarter: 2012Q2

REPORT INFORMATION
  Report Type: 
  Country: None (occurrence: None)
  Receive Date: 20120426
  Receipt Date: 20120426
  Transmission Date: 20120825
  Serious: Yes (Disabling)
  Sender: FDA-Public Use
  Company Number: None

PATIENT
  Age: 75 Year
  Sex: Female
  Weight: 88.4514 kg

DRUGS (2)
  1. LYRICA [Suspect]
     Indication: FIBROMYALGIA
     Dosage: 1 3 X DAY THEN 2
     Dates: start: 20110501, end: 20111101
  2. LYRICA [Suspect]
     Indication: ARTHRITIS
     Dosage: 1 3 X DAY THEN 2
     Dates: start: 20110501, end: 20111101

REACTIONS (1)
  - AMNESIA [None]
